FAERS Safety Report 25478773 (Version 1)
Quarter: 2025Q2

REPORT INFORMATION
  Report Type: Report from Study
  Country: US (occurrence: US)
  Receive Date: 20250625
  Receipt Date: 20250625
  Transmission Date: 20250716
  Serious: Yes (Other)
  Sender: ALEXION PHARMACEUTICALS
  Company Number: US-AstraZeneca-CH-00897550A

PATIENT
  Weight: 59 kg

DRUGS (2)
  1. OLAPARIB [Suspect]
     Active Substance: OLAPARIB
     Indication: Breast cancer
     Dosage: 300 MILLIGRAM, BID
  2. KISQALI [Concomitant]
     Active Substance: RIBOCICLIB SUCCINATE
     Route: 065

REACTIONS (1)
  - Pulmonary congestion [Unknown]
